FAERS Safety Report 8795711 (Version 2)
Quarter: 2012Q4

REPORT INFORMATION
  Report Type: 
  Country: None (occurrence: None)
  Receive Date: 20120920
  Receipt Date: 20121001
  Transmission Date: 20130627
  Serious: Yes (Death, Hospitalization)
  Sender: FDA-Public Use
  Company Number: RS-MPIJNJ-2012-06420

PATIENT

DRUGS (5)
  1. VELCADE [Suspect]
     Indication: MULTIPLE MYELOMA
     Dosage: 1.3 mg/m2, UNK
     Route: 065
     Dates: start: 20120713
  2. VELCADE [Suspect]
     Dosage: 1.0 mg/m2, UNK
     Route: 065
     Dates: start: 201208
  3. DEXAMETHASONE [Concomitant]
  4. THALIDOMIDE [Concomitant]
  5. CYCLOPHOSPHAMIDE [Concomitant]

REACTIONS (5)
  - Disease progression [Fatal]
  - Haemorrhagic disorder [Fatal]
  - Thrombocytopenia [Fatal]
  - Anaemia [Unknown]
  - General physical health deterioration [Unknown]
